FAERS Safety Report 6843909-1 (Version None)
Quarter: 2010Q3

REPORT INFORMATION
  Report Type: 
  Country: None (occurrence: None)
  Receive Date: 20100715
  Receipt Date: 20100709
  Transmission Date: 20110219
  Serious: Yes (Other)
  Sender: FDA-Public Use
  Company Number: US-ELI_LILLY_AND_COMPANY-US201007002067

PATIENT
  Sex: Female
  Weight: 77.551 kg

DRUGS (2)
  1. HUMALOG [Suspect]
     Dosage: UNK, 3/D
  2. LANTUS [Concomitant]
     Indication: DIABETES MELLITUS
     Dosage: 35 U, EACH EVENING

REACTIONS (5)
  - BLOOD GLUCOSE DECREASED [None]
  - BLOOD GLUCOSE INCREASED [None]
  - CONFUSIONAL STATE [None]
  - HYPOGLYCAEMIC UNCONSCIOUSNESS [None]
  - WEIGHT INCREASED [None]
